FAERS Safety Report 16595137 (Version 1)
Quarter: 2019Q3

REPORT INFORMATION
  Report Type: Report from Study
  Country: US (occurrence: US)
  Receive Date: 20190718
  Receipt Date: 20190718
  Transmission Date: 20191004
  Serious: No
  Sender: FDA-Public Use
  Company Number: PHEH2019US029606

PATIENT
  Sex: Female

DRUGS (1)
  1. ENTRESTO [Suspect]
     Active Substance: SACUBITRIL\VALSARTAN
     Indication: PRODUCT USED FOR UNKNOWN INDICATION
     Dosage: UNK
     Route: 048

REACTIONS (7)
  - Fibromyalgia [Unknown]
  - Feeling abnormal [Unknown]
  - Dysphonia [Unknown]
  - Productive cough [Unknown]
  - Tooth infection [Unknown]
  - Malaise [Unknown]
  - Depression [Unknown]
